FAERS Safety Report 6529299-2 (Version None)
Quarter: 2010Q1

REPORT INFORMATION
  Report Type: 
  Country: None (occurrence: None)
  Receive Date: 20100107
  Receipt Date: 20091228
  Transmission Date: 20100710
  Serious: Yes (Other)
  Sender: FDA-Public Use
  Company Number: PHHY2009JP53724

PATIENT
  Age: 43 Year
  Sex: Male

DRUGS (3)
  1. VOLTAREN [Suspect]
     Indication: HEADACHE
     Dosage: 75 MG PER DAY
     Route: 048
     Dates: end: 20070914
  2. VOLTAREN [Suspect]
     Dosage: DOSE DECRAESED
  3. NSAID'S [Concomitant]
     Indication: HEADACHE

REACTIONS (6)
  - DRUG ABUSE [None]
  - HEADACHE [None]
  - MIGRAINE [None]
  - MIGRAINE WITHOUT AURA [None]
  - NAUSEA [None]
  - TENSION HEADACHE [None]
